FAERS Safety Report 18058644 (Version 3)
Quarter: 2022Q3

REPORT INFORMATION
  Report Type: Spontaneous
  Country: US (occurrence: US)
  Receive Date: 20200723
  Receipt Date: 20220912
  Transmission Date: 20221027
  Serious: Yes (Other)
  Sender: FDA-Public Use
  Company Number: US-SAARTEMIS-SAC202007200165

PATIENT
  Age: 66 Year
  Sex: Male

DRUGS (1)
  1. ZANTAC [Suspect]
     Active Substance: RANITIDINE HYDROCHLORIDE
     Indication: Dyspepsia
     Dosage: 75 MG, QD
     Dates: start: 198505, end: 201808

REACTIONS (3)
  - Nasopharyngeal cancer [Unknown]
  - Oesophageal carcinoma [Unknown]
  - Tonsil cancer [Unknown]

NARRATIVE: CASE EVENT DATE: 20160501
